FAERS Safety Report 6258919-5 (Version None)
Quarter: 2009Q3

REPORT INFORMATION
  Report Type: 
  Country: None (occurrence: None)
  Receive Date: 20090707
  Receipt Date: 20090625
  Transmission Date: 20100115
  Serious: Yes (Other)
  Sender: FDA-Public Use
  Company Number: JP-ALLERGAN-0908474US

PATIENT
  Age: 79 Year
  Sex: Female

DRUGS (6)
  1. BOTOX [Suspect]
     Indication: BLEPHAROSPASM
     Dosage: 18 UNITS, SINGLE
     Route: 030
     Dates: start: 20090526, end: 20090526
  2. BOTOX [Suspect]
     Dosage: 18 UNITS, SINGLE
     Route: 030
     Dates: start: 20090206, end: 20090206
  3. BOTOX [Suspect]
     Dosage: 18 UNITS, SINGLE
     Route: 030
     Dates: start: 20081024, end: 20081024
  4. BOTOX [Suspect]
     Dosage: 16 UNITS, SINGLE
     Route: 030
     Dates: start: 20000704, end: 20000704
  5. TATHION [Concomitant]
     Indication: CATARACT
     Dosage: 2 GTT, 5 X PER DAY
     Route: 047
  6. AZOTESIN [Concomitant]
     Indication: CONJUNCTIVITIS
     Dosage: 2 GTT, 5 X PER DAY
     Route: 047

REACTIONS (3)
  - ABSCESS OF EYELID [None]
  - CORNEAL DISORDER [None]
  - ULCERATIVE KERATITIS [None]
